FAERS Safety Report 6124377-4 (Version None)
Quarter: 2009Q1

REPORT INFORMATION
  Report Type: 
  Country: None (occurrence: None)
  Receive Date: 20090319
  Receipt Date: 20090319
  Transmission Date: 20090719
  Serious: Yes (Hospitalization)
  Sender: FDA-Public Use
  Company Number: US-PFIZER INC-2008150663

PATIENT
  Sex: Female
  Weight: 46.259 kg

DRUGS (10)
  1. DETROL LA [Suspect]
     Indication: URINARY INCONTINENCE
     Dosage: UNK
     Dates: start: 20050101
  2. OXYBUTYNIN CHLORIDE [Suspect]
     Indication: URINARY INCONTINENCE
     Dates: start: 20060701
  3. ASCORBIC ACID [Concomitant]
     Dosage: UNK
  4. SIMVASTATIN [Concomitant]
     Dosage: UNK
  5. METHOTREXATE SODIUM [Concomitant]
     Dosage: UNK
  6. NAMENDA [Concomitant]
     Dosage: UNK
  7. AMLODIPINE BESILATE [Concomitant]
     Dosage: UNK
  8. LISINOPRIL [Concomitant]
     Dosage: UNK
  9. NITROFURANTOIN [Concomitant]
     Dosage: UNK
  10. METOPROLOL [Concomitant]
     Dosage: UNK

REACTIONS (8)
  - BLOOD GLUCOSE DECREASED [None]
  - BLOOD SODIUM DECREASED [None]
  - CONFUSIONAL STATE [None]
  - CYSTITIS [None]
  - DRUG INEFFECTIVE [None]
  - EATING DISORDER [None]
  - GAIT DISTURBANCE [None]
  - MEMORY IMPAIRMENT [None]
